FAERS Safety Report 11288089 (Version 1)
Quarter: 2015Q3

REPORT INFORMATION
  Report Type: Spontaneous
  Country: ES (occurrence: ES)
  Receive Date: 20150721
  Receipt Date: 20150721
  Transmission Date: 20151125
  Serious: Yes (Other)
  Sender: FDA-Public Use
  Company Number: ES-TEVA-579227ISR

PATIENT
  Age: 79 Year
  Sex: Female

DRUGS (1)
  1. ETOPOSIDO TEVA 20 MG/ML CONCENTRATE FOR SOLUTION FOR INFUSION, 1 VIAL [Suspect]
     Active Substance: ETOPOSIDE
     Indication: LUNG NEOPLASM MALIGNANT
     Route: 042
     Dates: start: 20141114, end: 20141114

REACTIONS (1)
  - Respiratory failure [Recovered/Resolved]

NARRATIVE: CASE EVENT DATE: 20141114
